FAERS Safety Report 8184699-2 (Version None)
Quarter: 2012Q1

REPORT INFORMATION
  Report Type: 
  Country: None (occurrence: None)
  Receive Date: 20120305
  Receipt Date: 20120305
  Transmission Date: 20120608
  Serious: No
  Sender: FDA-Public Use
  Company Number: None

PATIENT
  Age: 56 Year
  Sex: Female
  Weight: 87.8 kg

DRUGS (1)
  1. ACETADOTE [Suspect]
     Indication: LIVER INJURY
     Dosage: 13,180MG
     Route: 042
     Dates: start: 20120228, end: 20120228

REACTIONS (6)
  - NAUSEA [None]
  - VOMITING [None]
  - HEADACHE [None]
  - FEELING ABNORMAL [None]
  - RESTLESSNESS [None]
  - INFUSION RELATED REACTION [None]
